FAERS Safety Report 18014250 (Version 2)
Quarter: 2021Q2

REPORT INFORMATION
  Report Type: Spontaneous
  Country: DE (occurrence: DE)
  Receive Date: 20200713
  Receipt Date: 20210628
  Transmission Date: 20210717
  Serious: Yes (Hospitalization)
  Sender: FDA-Public Use
  Company Number: DE-TEVA-2020-DE-1801226

PATIENT
  Age: 25 Year
  Sex: Female

DRUGS (1)
  1. GLATIRAMERACETAT ABZ 40 MG/ML [Suspect]
     Active Substance: GLATIRAMER ACETATE
     Indication: MULTIPLE SCLEROSIS
     Dates: start: 20200623, end: 20200623

REACTIONS (6)
  - Pain in extremity [Not Recovered/Not Resolved]
  - Drug hypersensitivity [Recovered/Resolved]
  - Injection site dysaesthesia [Recovered/Resolved]
  - Dyspnoea [Recovered/Resolved]
  - Erythema [Recovered/Resolved]
  - Pharyngeal swelling [Recovered/Resolved]

NARRATIVE: CASE EVENT DATE: 20200623
